FAERS Safety Report 4536482-4 (Version None)
Quarter: 2004Q4

REPORT INFORMATION
  Report Type: 
  Country: None (occurrence: None)
  Receive Date: 20041220
  Receipt Date: 20041209
  Transmission Date: 20050328
  Serious: Yes (Hospitalization)
  Sender: FDA-Public Use
  Company Number: 2004-05203

PATIENT
  Age: 74 Year
  Sex: Female
  Weight: 80.3 kg

DRUGS (3)
  1. OXYTROL [Suspect]
     Indication: HYPERTONIC BLADDER
     Dosage: 1 PATCH, 2/WEEK, TRANSDERMAL
     Dates: start: 20041101, end: 20041122
  2. ACTONEL [Concomitant]
  3. MOBIC [Concomitant]

REACTIONS (3)
  - BACK PAIN [None]
  - PAIN IN EXTREMITY [None]
  - URINARY RETENTION [None]
